FAERS Safety Report 8775185 (Version 1)
Quarter: 2012Q4

REPORT INFORMATION
  Report Type: 
  Country: US (occurrence: US)
  Receive Date: 20120910
  Receipt Date: 20120910
  Transmission Date: 20130627
  Serious: No
  Sender: FDA-Public Use
  Company Number: US-009507513-1208USA002881

PATIENT

DRUGS (2)
  1. ISENTRESS [Suspect]
     Dosage: 400 mg, bid
     Route: 048
  2. ISENTRESS [Suspect]
     Dosage: 800 mg, qd

REACTIONS (2)
  - Inappropriate schedule of drug administration [Unknown]
  - No adverse event [Unknown]
